FAERS Safety Report 16049023 (Version 1)
Quarter: 2019Q1

REPORT INFORMATION
  Report Type: Spontaneous
  Country: ES (occurrence: ES)
  Receive Date: 20190307
  Receipt Date: 20190307
  Transmission Date: 20190418
  Serious: Yes (Hospitalization)
  Sender: FDA-Public Use
  Company Number: ES-009507513-1903ESP000312

PATIENT
  Age: 73 Year
  Sex: Female

DRUGS (12)
  1. FEMARA [Suspect]
     Active Substance: LETROZOLE
     Dosage: 1 DOSAGE FORM, Q24H
  2. SINOGAN [LEVOMEPROMAZINE HYDROCHLORIDE] [Suspect]
     Active Substance: LEVOMEPROMAZINE HYDROCHLORIDE
     Dosage: 0.5 DOSAGE FORM, Q24H
  3. BETMIGA [Suspect]
     Active Substance: MIRABEGRON
     Dosage: 50 MILLIGRAM, Q24H
  4. ACFOL [Suspect]
     Active Substance: FOLIC ACID
     Dosage: 5 MILLIGRAM, Q24H
  5. FERROUS SULFATE. [Suspect]
     Active Substance: FERROUS SULFATE
     Dosage: 2 DOSAGE FORM, Q24H
  6. INDOMETHACIN. [Suspect]
     Active Substance: INDOMETHACIN
     Dosage: 25 MILLIGRAM, Q8H
  7. OMEPRAZOLE. [Suspect]
     Active Substance: OMEPRAZOLE
     Dosage: 20 MILLIGRAM, Q24H
  8. LORAZEPAM. [Suspect]
     Active Substance: LORAZEPAM
     Dosage: 5 MILLIGRAM, Q24H
  9. SIMVASTATIN. [Suspect]
     Active Substance: SIMVASTATIN
     Dosage: 20 MILLIGRAM, Q24H
  10. METFORMIN [Suspect]
     Active Substance: METFORMIN HYDROCHLORIDE
     Dosage: 850 MILLIGRAM, Q12H
  11. MIRTAZAPINE. [Suspect]
     Active Substance: MIRTAZAPINE
     Dosage: 30 MILLIGRAM, Q24H
  12. ACETAMINOPHEN (+) TRAMADOL HYDROCHLORIDE [Suspect]
     Active Substance: ACETAMINOPHEN\TRAMADOL HYDROCHLORIDE
     Dosage: 37.5, UNK, Q8H

REACTIONS (5)
  - Extradural abscess [Unknown]
  - Meningitis [Unknown]
  - Headache [Unknown]
  - Osteomyelitis [Unknown]
  - Urinary tract infection [Unknown]

NARRATIVE: CASE EVENT DATE: 20171015
